FAERS Safety Report 12531307 (Version 9)
Quarter: 2016Q4

REPORT INFORMATION
  Report Type: Spontaneous
  Country: US (occurrence: US)
  Receive Date: 20160706
  Receipt Date: 20161125
  Transmission Date: 20170207
  Serious: Yes (Other)
  Sender: FDA-Public Use
  Company Number: US-009507513-1607USA000529

PATIENT
  Sex: Female

DRUGS (1)
  1. NEXPLANON [Suspect]
     Active Substance: ETONOGESTREL
     Dosage: ONE ROD/3 YEARS
     Route: 059
     Dates: start: 201601

REACTIONS (7)
  - Complication associated with device [Not Recovered/Not Resolved]
  - Implant site scar [Unknown]
  - Drug dose omission [Unknown]
  - Unintended pregnancy [Unknown]
  - Complication associated with device [Not Recovered/Not Resolved]
  - Pregnancy with implant contraceptive [Unknown]
  - Implant site infection [Unknown]

NARRATIVE: CASE EVENT DATE: 2016
